FAERS Safety Report 14681062 (Version 1)
Quarter: 2018Q1

REPORT INFORMATION
  Report Type: Spontaneous
  Country: US (occurrence: US)
  Receive Date: 20180325
  Receipt Date: 20180325
  Transmission Date: 20180509
  Serious: Yes (Death)
  Sender: FDA-Public Use
  Company Number: None

PATIENT
  Age: 67 Year
  Sex: Male
  Weight: 82.5 kg

DRUGS (1)
  1. HEPARIN /SODIUM CHLORIDE [Suspect]
     Active Substance: HEPARIN SODIUM\SODIUM CHLORIDE
     Indication: ATRIAL FLUTTER
     Dosage: FREQUENCY - OTHER
     Route: 042
     Dates: start: 20180103, end: 20180105

REACTIONS (5)
  - Haematemesis [None]
  - Hypotension [None]
  - Gastric haemorrhage [None]
  - Cardiogenic shock [None]
  - Haemoglobin decreased [None]

NARRATIVE: CASE EVENT DATE: 20180105
